FAERS Safety Report 4470095-8 (Version None)
Quarter: 2004Q3

REPORT INFORMATION
  Report Type: 
  Country: None (occurrence: None)
  Receive Date: 20040910
  Receipt Date: 20040706
  Transmission Date: 20050211
  Serious: No
  Sender: FDA-Public Use
  Company Number: 2004222561US

PATIENT
  Sex: Female

DRUGS (2)
  1. BEXTRA [Suspect]
     Dosage: 10 MG, QD
  2. ARICEPT [Suspect]

REACTIONS (3)
  - COGNITIVE DISORDER [None]
  - DRUG INTERACTION [None]
  - MEMORY IMPAIRMENT [None]
